FAERS Safety Report 11718869 (Version 2)
Quarter: 2015Q4

REPORT INFORMATION
  Report Type: Report from Study
  Country: US (occurrence: US)
  Receive Date: 20151109
  Receipt Date: 20151115
  Transmission Date: 20160304
  Serious: Yes (Hospitalization)
  Sender: FDA-Public Use
  Company Number: US-KADMON PHARMACEUTICALS, LLC-KAD201511-003818

PATIENT
  Age: 62 Year
  Sex: Female
  Weight: 87.54 kg

DRUGS (11)
  1. LEVOTHYROXINE. [Concomitant]
     Active Substance: LEVOTHYROXINE
     Route: 048
  2. RIBAVIRIN 200 MG TABLETS [Suspect]
     Active Substance: RIBAVIRIN
     Indication: HEPATITIS C
     Route: 048
     Dates: start: 20150905, end: 20151028
  3. XIFAXAN [Concomitant]
     Active Substance: RIFAXIMIN
     Route: 048
  4. HYDROXYCHLOROQUINE [Concomitant]
     Active Substance: HYDROXYCHLOROQUINE
     Route: 048
  5. VIEKIRA PAK [Suspect]
     Active Substance: DASABUVIR\OMBITASVIR\PARITAPREVIR\RITONAVIR
     Indication: HEPATITIS C
     Dosage: TABLET
     Route: 048
     Dates: start: 20150905, end: 20151028
  6. ATENOLOL. [Concomitant]
     Active Substance: ATENOLOL
     Indication: HYPERTENSION
     Route: 048
  7. VITAMIN D [Concomitant]
     Active Substance: CHOLECALCIFEROL
     Route: 048
  8. TYLENOL [Concomitant]
     Active Substance: ACETAMINOPHEN
     Indication: PAIN
     Route: 048
  9. BACITRACIN ZINC. [Concomitant]
     Active Substance: BACITRACIN ZINC
     Route: 054
  10. LACTULOSE. [Concomitant]
     Active Substance: LACTULOSE
     Route: 048
  11. VITAMIN A [Concomitant]
     Active Substance: VITAMIN A
     Dosage: CAPSULE
     Route: 048

REACTIONS (8)
  - Condition aggravated [Unknown]
  - Hepatic encephalopathy [Unknown]
  - Hepatic cirrhosis [Unknown]
  - Gastrointestinal disorder [Unknown]
  - Hyponatraemia [Unknown]
  - Abasia [Recovered/Resolved]
  - Rectal haemorrhage [Unknown]
  - Hepatic failure [Unknown]

NARRATIVE: CASE EVENT DATE: 201510
